FAERS Safety Report 6635633-5 (Version None)
Quarter: 2010Q1

REPORT INFORMATION
  Report Type: 
  Country: None (occurrence: None)
  Receive Date: 20100315
  Receipt Date: 20100305
  Transmission Date: 20100710
  Serious: Yes (Other)
  Sender: FDA-Public Use
  Company Number: US-AMGEN-QUU395575

PATIENT
  Sex: Male

DRUGS (1)
  1. NPLATE [Suspect]
     Indication: IDIOPATHIC THROMBOCYTOPENIC PURPURA
     Dates: start: 20091112, end: 20100107

REACTIONS (6)
  - ACUTE MYELOID LEUKAEMIA [None]
  - BIOPSY BONE MARROW ABNORMAL [None]
  - CHEST PAIN [None]
  - CHRONIC MYELOID LEUKAEMIA [None]
  - MYELODYSPLASTIC SYNDROME [None]
  - THROMBOCYTOPENIA [None]
